FAERS Safety Report 8508059-7 (Version None)
Quarter: 2012Q3

REPORT INFORMATION
  Report Type: 
  Country: None (occurrence: None)
  Receive Date: 20120713
  Receipt Date: 20120712
  Transmission Date: 20120928
  Serious: Yes (Hospitalization)
  Sender: FDA-Public Use
  Company Number: PHHY2012SK058851

PATIENT
  Sex: Female

DRUGS (6)
  1. CELLCEPT [Concomitant]
  2. PREDNISONE [Concomitant]
     Indication: RENAL TRANSPLANT
     Dosage: 10 MG, DAILY
     Route: 048
     Dates: start: 20040101
  3. ASPIRIN [Concomitant]
     Indication: RENAL TRANSPLANT
     Dosage: 100 MG, UDAILYNK
     Route: 048
  4. MYFORTIC [Suspect]
     Indication: RENAL TRANSPLANT
     Dosage: 180 MG, BID
     Route: 048
     Dates: start: 20120621, end: 20120706
  5. TACROLIMUS [Concomitant]
     Indication: RENAL TRANSPLANT
     Dosage: 2.5 MG, DAILY
     Route: 048
     Dates: start: 20040101
  6. LOKREN [Concomitant]
     Indication: HYPERTENSION
     Dosage: 10 MG, DAILY
     Route: 048
     Dates: start: 20040101

REACTIONS (6)
  - LIPASE INCREASED [None]
  - AMYLASE INCREASED [None]
  - OEDEMATOUS PANCREATITIS [None]
  - DIARRHOEA [None]
  - VOMITING [None]
  - PANCREATITIS [None]
